FAERS Safety Report 13863644 (Version 4)
Quarter: 2017Q4

REPORT INFORMATION
  Report Type: Report from Study
  Country: US (occurrence: US)
  Receive Date: 20170814
  Receipt Date: 20171005
  Transmission Date: 20180320
  Serious: Yes (Hospitalization, Other)
  Sender: FDA-Public Use
  Company Number: US-AMGEN-USASL2017120483

PATIENT
  Age: 46 Year
  Sex: Female

DRUGS (1)
  1. ENBREL [Suspect]
     Active Substance: ETANERCEPT
     Indication: RHEUMATOID ARTHRITIS
     Dosage: 50 MG, QWK
     Route: 058

REACTIONS (8)
  - Gastric disorder [Unknown]
  - Ankle fracture [Unknown]
  - Malaise [Unknown]
  - Nausea [Unknown]
  - Weight decreased [Unknown]
  - Incontinence [Unknown]
  - Mastocytosis [Unknown]
  - Fall [Unknown]

NARRATIVE: CASE EVENT DATE: 2017
